FAERS Safety Report 20257242 (Version 1)
Quarter: 2021Q4

REPORT INFORMATION
  Report Type: Spontaneous
  Country: US (occurrence: US)
  Receive Date: 20211230
  Receipt Date: 20211230
  Transmission Date: 20220303
  Serious: No
  Sender: FDA-Public Use
  Company Number: US-SA-SAC20211225000345

PATIENT
  Age: 26 Year
  Sex: Female

DRUGS (1)
  1. DUPIXENT [Suspect]
     Active Substance: DUPILUMAB
     Indication: Dermatitis atopic
     Dosage: 300 MG
     Route: 058

REACTIONS (6)
  - Eczema [Unknown]
  - Quality of life decreased [Unknown]
  - Discomfort [Unknown]
  - Rash [Unknown]
  - Product dose omission issue [Unknown]
  - Unevaluable event [Unknown]
